FAERS Safety Report 7626797-5 (Version None)
Quarter: 2011Q3

REPORT INFORMATION
  Report Type: 
  Country: None (occurrence: None)
  Receive Date: 20110713
  Receipt Date: 20110627
  Transmission Date: 20111222
  Serious: No
  Sender: FDA-Public Use
  Company Number: WAES 1106USA03850

PATIENT
  Age: 25 Year
  Sex: Male

DRUGS (1)
  1. SOLN IVOMEC POUR ON UNK [Suspect]
     Indication: DRUG ADMINISTRATION ERROR
     Dosage: TOP
     Route: 061
     Dates: start: 20110623

REACTIONS (3)
  - ACCIDENTAL EXPOSURE [None]
  - VOMITING [None]
  - HEADACHE [None]
